FAERS Safety Report 10871752 (Version 1)
Quarter: 2015Q1

REPORT INFORMATION
  Report Type: Spontaneous
  Country: US (occurrence: US)
  Receive Date: 20150226
  Receipt Date: 20150226
  Transmission Date: 20150721
  Serious: No
  Sender: FDA-Public Use
  Company Number: US-MYLANLABS-2014S1016412

PATIENT
  Age: 71 Year
  Sex: Female
  Weight: 76.2 kg

DRUGS (8)
  1. AMLODIPINE BESILATE TABLETS [Suspect]
     Active Substance: AMLODIPINE BESYLATE
     Dosage: 10 MG, QD
  2. ASA [Concomitant]
     Active Substance: ASPIRIN
     Dosage: 81 MG, UNK
  3. AMLODIPINE BESILATE TABLETS [Suspect]
     Active Substance: AMLODIPINE BESYLATE
     Indication: HYPERTENSION
  4. AMLODIPINE BESILATE TABLETS [Suspect]
     Active Substance: AMLODIPINE BESYLATE
     Dosage: 5 MG,QD
     Route: 048
  5. FISH OIL [Concomitant]
     Active Substance: FISH OIL
     Dosage: UNK, QD
  6. METOPROLOL TARTRATE TABLETS USP [Suspect]
     Active Substance: METOPROLOL TARTRATE
     Indication: HYPERTENSION
     Dosage: 25 MG,BID
     Route: 048
  7. METOPROLOL TARTRATE TABLETS USP [Suspect]
     Active Substance: METOPROLOL TARTRATE
     Dosage: 25 MG, PM
     Route: 048
  8. METOPROLOL TARTRATE TABLETS USP [Suspect]
     Active Substance: METOPROLOL TARTRATE
     Dosage: 12.5 MG, AM
     Route: 048

REACTIONS (13)
  - Blood pressure increased [Not Recovered/Not Resolved]
  - Somnolence [Not Recovered/Not Resolved]
  - Sinus disorder [Not Recovered/Not Resolved]
  - Asthenopia [Not Recovered/Not Resolved]
  - Drug effect decreased [Not Recovered/Not Resolved]
  - Anxiety [Not Recovered/Not Resolved]
  - Feeling abnormal [Not Recovered/Not Resolved]
  - Flushing [Not Recovered/Not Resolved]
  - Nervousness [Not Recovered/Not Resolved]
  - Heart rate increased [Not Recovered/Not Resolved]
  - Fatigue [Not Recovered/Not Resolved]
  - Heart rate decreased [Not Recovered/Not Resolved]
  - Dizziness [Not Recovered/Not Resolved]

NARRATIVE: CASE EVENT DATE: 201401
